FAERS Safety Report 4420892-X (Version None)
Quarter: 2004Q3

REPORT INFORMATION
  Report Type: 
  Country: None (occurrence: None)
  Receive Date: 20040809
  Receipt Date: 20040729
  Transmission Date: 20050211
  Serious: Yes (Hospitalization)
  Sender: FDA-Public Use
  Company Number: FR-ROCHE-376226

PATIENT
  Age: 32 Year
  Sex: Female

DRUGS (5)
  1. PEGASYS [Suspect]
     Indication: HEPATITIS
     Dosage: TAKEN ONCE WEEKLY.
     Route: 058
     Dates: start: 20031110, end: 20040408
  2. REBETOL [Suspect]
     Indication: HEPATITIS
     Route: 048
     Dates: start: 20031110, end: 20040415
  3. LEXOMIL [Concomitant]
     Indication: ANXIETY
     Route: 048
     Dates: start: 20040219
  4. DEROXAT [Concomitant]
     Route: 048
     Dates: start: 20040219
  5. IMOVANE [Concomitant]
     Indication: SLEEP DISORDER
     Route: 048

REACTIONS (4)
  - ANOREXIA [None]
  - ASTHENIA [None]
  - SYNCOPE [None]
  - VISUAL FIELD DEFECT [None]
